FAERS Safety Report 6546003-2 (Version None)
Quarter: 2010Q1

REPORT INFORMATION
  Report Type: 
  Country: None (occurrence: None)
  Receive Date: 20100121
  Receipt Date: 20100121
  Transmission Date: 20100710
  Serious: Yes (Hospitalization)
  Sender: FDA-Public Use
  Company Number: None

PATIENT
  Age: 62 Year
  Sex: Male

DRUGS (1)
  1. GABAPENTIN [Suspect]
     Dosage: 1  FOUR TIMES A DAY

REACTIONS (3)
  - LOSS OF CONSCIOUSNESS [None]
  - PARAESTHESIA [None]
  - PRODUCT QUALITY ISSUE [None]
